FAERS Safety Report 7426121-7 (Version None)
Quarter: 2011Q2

REPORT INFORMATION
  Report Type: 
  Country: None (occurrence: None)
  Receive Date: 20110420
  Receipt Date: 20110408
  Transmission Date: 20111010
  Serious: Yes (Other)
  Sender: FDA-Public Use
  Company Number: PHFR2008GB01387

PATIENT
  Sex: Male

DRUGS (3)
  1. AMISULPRIDE [Concomitant]
  2. CLOZARIL [Suspect]
     Indication: SCHIZOPHRENIA
     Dosage: 550 MG, UNK
     Route: 048
     Dates: start: 19990601
  3. FLUOXETINE [Concomitant]

REACTIONS (11)
  - HALLUCINATION, VISUAL [None]
  - BLOOD ALKALINE PHOSPHATASE INCREASED [None]
  - WHITE BLOOD CELL COUNT DECREASED [None]
  - ALANINE AMINOTRANSFERASE INCREASED [None]
  - NEUTROPHIL COUNT DECREASED [None]
  - PLATELET COUNT DECREASED [None]
  - ABDOMINAL DISCOMFORT [None]
  - HEPATITIS C VIRUS TEST POSITIVE [None]
  - LIVER DISORDER [None]
  - DRUG LEVEL INCREASED [None]
  - HYPERHIDROSIS [None]
